FAERS Safety Report 4604343-8 (Version None)
Quarter: 2005Q1

REPORT INFORMATION
  Report Type: 
  Country: None (occurrence: None)
  Receive Date: 20050308
  Receipt Date: 20050224
  Transmission Date: 20050727
  Serious: Yes (Hospitalization)
  Sender: FDA-Public Use
  Company Number: ZICO001013

PATIENT
  Age: 42 Year
  Sex: Female
  Weight: 58.0604 kg

DRUGS (12)
  1. PRIALT [Suspect]
     Indication: PAIN
     Dosage: 0.291 MCG/HR. INTRATHECAL
     Route: 037
     Dates: start: 20031006, end: 20031208
  2. INFUMORPH [Suspect]
     Indication: PAIN
     Dosage: 1.250 MCG/HR. INTRATHECAL
     Route: 037
     Dates: start: 20030929
  3. LEXAPRO [Concomitant]
  4. GEODONE (ZIPRASIDONE) [Concomitant]
  5. TRILEPTAL [Concomitant]
  6. GABITRIL [Concomitant]
  7. ACTILAX (BRAN) [Concomitant]
  8. CLONIDINE [Concomitant]
  9. ALPRAZOLAM [Concomitant]
  10. AMITRIPTYLINE HCL [Concomitant]
  11. THORAZINE [Concomitant]
  12. SONATA [Concomitant]

REACTIONS (9)
  - AGITATION [None]
  - ANOREXIA [None]
  - DELUSION [None]
  - HALLUCINATION [None]
  - INSOMNIA [None]
  - PARANOIA [None]
  - SPEECH DISORDER [None]
  - SUICIDAL IDEATION [None]
  - THINKING ABNORMAL [None]
